FAERS Safety Report 21091285 (Version 1)
Quarter: 2022Q3

REPORT INFORMATION
  Report Type: Spontaneous
  Country: RU (occurrence: None)
  Receive Date: 20220716
  Receipt Date: 20220716
  Transmission Date: 20221027
  Serious: Yes (Other)
  Sender: FDA-Public Use
  Company Number: RU-ROCHE-3133863

PATIENT

DRUGS (23)
  1. RITUXIMAB [Suspect]
     Active Substance: RITUXIMAB
     Indication: B-cell lymphoma
     Dosage: 1ST SYSTEMIC TREATMENT
     Route: 065
     Dates: start: 20170401, end: 20170701
  2. RITUXIMAB [Suspect]
     Active Substance: RITUXIMAB
     Dosage: SECOND SYSTEMIC TREATMENT
     Route: 065
     Dates: start: 20170701, end: 20170801
  3. RITUXIMAB [Suspect]
     Active Substance: RITUXIMAB
     Dosage: THIRD SYSTEMIC TREATMENT
     Route: 065
     Dates: start: 20170815, end: 20171101
  4. RITUXIMAB [Suspect]
     Active Substance: RITUXIMAB
     Dosage: FOURTH SYSTEMIC TREATMENT
     Route: 065
     Dates: start: 20171120, end: 20180515
  5. RITUXIMAB [Suspect]
     Active Substance: RITUXIMAB
     Dosage: FIFTH SYSTEMIC TREATMENT
     Route: 065
     Dates: start: 20180620, end: 20180812
  6. RITUXIMAB [Suspect]
     Active Substance: RITUXIMAB
     Dosage: MOST RECENT SYSTEMIC TREATMENT
     Route: 065
     Dates: start: 20200120, end: 20201101
  7. ETOPOSIDE PHOSPHATE [Suspect]
     Active Substance: ETOPOSIDE PHOSPHATE
     Indication: B-cell lymphoma
     Dosage: 1ST SYSTEMIC TREATMENT
     Route: 065
     Dates: start: 20170401, end: 20170701
  8. PREDNISONE [Suspect]
     Active Substance: PREDNISONE
     Indication: B-cell lymphoma
     Dosage: 1ST SYSTEMIC TREATMENT
     Route: 065
     Dates: start: 20170401, end: 20170701
  9. PREDNISONE [Suspect]
     Active Substance: PREDNISONE
     Dosage: 3RD LINE SYSTEMIC TREATMENT
     Route: 065
     Dates: start: 20170815, end: 20171101
  10. VINCRISTINE SULFATE [Suspect]
     Active Substance: VINCRISTINE SULFATE
     Indication: B-cell lymphoma
     Dosage: 1ST SYSTEMIC TREATMENT
     Route: 065
     Dates: start: 20170401, end: 20170701
  11. VINCRISTINE SULFATE [Suspect]
     Active Substance: VINCRISTINE SULFATE
     Dosage: 3RD LINE SYSTEMIC TREATMENT
     Route: 065
     Dates: start: 20170815, end: 20171101
  12. CYCLOPHOSPHAMIDE [Suspect]
     Active Substance: CYCLOPHOSPHAMIDE
     Indication: B-cell lymphoma
     Dosage: 1ST SYSTEMIC TREATMENT
     Route: 065
     Dates: start: 20170401, end: 20170701
  13. CYCLOPHOSPHAMIDE [Suspect]
     Active Substance: CYCLOPHOSPHAMIDE
     Dosage: 3RD LINE SYSTEMIC TREATMENT
     Route: 065
     Dates: start: 20170815, end: 20171101
  14. DOXORUBICIN [Suspect]
     Active Substance: DOXORUBICIN
     Indication: B-cell lymphoma
     Dosage: 1ST SYSTEMIC TREATMENT
     Route: 065
     Dates: start: 20170401, end: 20170701
  15. DOXORUBICIN [Suspect]
     Active Substance: DOXORUBICIN
     Dosage: 3RD LINE SYSTEMIC TREATMENT
     Route: 065
     Dates: start: 20170815, end: 20171101
  16. DEXAMETHASONE [Suspect]
     Active Substance: DEXAMETHASONE
     Indication: B-cell lymphoma
     Dosage: 2ND SYSTEMIC TREATMENT
     Route: 065
     Dates: start: 20170701, end: 20170801
  17. DEXAMETHASONE [Suspect]
     Active Substance: DEXAMETHASONE
     Dosage: 4TH LINE SYSTEMIC TREATMENT
     Route: 065
     Dates: start: 20171120, end: 20180515
  18. CYTARABINE [Suspect]
     Active Substance: CYTARABINE
     Indication: B-cell lymphoma
     Dosage: 2ND SYSTEMIC TREATMENT
     Route: 065
     Dates: start: 20170701, end: 20170801
  19. CISPLATIN [Suspect]
     Active Substance: CISPLATIN
     Indication: B-cell lymphoma
     Dosage: 2ND SYSTEMIC TREATMENT
     Route: 065
     Dates: start: 20170701, end: 20170801
  20. CISPLATIN [Suspect]
     Active Substance: CISPLATIN
     Dosage: 4TH LINE SYSTEMIC TREATMENT
     Route: 065
     Dates: start: 20171120, end: 20180515
  21. GEMCITABINE [Suspect]
     Active Substance: GEMCITABINE
     Indication: B-cell lymphoma
     Dosage: 4TH LINE SYSTEMIC TREATMENT
     Route: 065
     Dates: start: 20171120, end: 20180515
  22. LENALIDOMIDE [Suspect]
     Active Substance: LENALIDOMIDE
     Indication: B-cell lymphoma
     Dosage: 5TH LINE SYSTEMIC TREATMENT
     Route: 065
     Dates: start: 20180620, end: 20180812
  23. LENALIDOMIDE [Suspect]
     Active Substance: LENALIDOMIDE
     Dosage: MOST RECENT SYSTEMIC TREATMENT
     Route: 065
     Dates: start: 20200120, end: 20201101

REACTIONS (1)
  - Disease progression [Unknown]
